FAERS Safety Report 24782110 (Version 1)
Quarter: 2024Q4

REPORT INFORMATION
  Report Type: Spontaneous
  Country: US (occurrence: None)
  Receive Date: 20241226
  Receipt Date: 20241226
  Transmission Date: 20250114
  Serious: Yes (Hospitalization)
  Sender: Public
  Company Number: None

PATIENT
  Age: 62 Year
  Sex: Female
  Weight: 86.4 kg

DRUGS (2)
  1. INGREZZA [Suspect]
     Active Substance: VALBENAZINE
     Indication: Tardive dyskinesia
     Dosage: FREQUENCY : DAILY;?
     Route: 048
     Dates: start: 20241024, end: 20241117
  2. LITHIUM [Suspect]
     Active Substance: LITHIUM

REACTIONS (2)
  - Angioedema [None]
  - Acute kidney injury [None]

NARRATIVE: CASE EVENT DATE: 20241117
